FAERS Safety Report 4326369-4 (Version None)
Quarter: 2004Q1

REPORT INFORMATION
  Report Type: 
  Country: None (occurrence: None)
  Receive Date: 20040330
  Receipt Date: 20020612
  Transmission Date: 20041129
  Serious: Yes (Life-Threatening)
  Sender: FDA-Public Use
  Company Number: PHBS2002JP07070

PATIENT
  Age: 30 Year
  Sex: Male
  Weight: 57 kg

DRUGS (11)
  1. NEORAL [Suspect]
     Indication: SYSTEMIC LUPUS ERYTHEMATOSUS
     Dosage: 150 MG/DAY
     Route: 048
     Dates: start: 19990601
  2. NEORAL [Suspect]
     Dosage: 100 MG/D
     Route: 048
     Dates: start: 20020214, end: 20020220
  3. NEORAL [Suspect]
     Dosage: 150 MG/D
     Route: 048
     Dates: start: 20020221, end: 20020228
  4. NEORAL [Suspect]
     Dosage: 200 MG/D
     Route: 048
     Dates: start: 20020301, end: 20020306
  5. NEORAL [Suspect]
     Dosage: 250 MG/D
     Route: 048
     Dates: start: 20020307, end: 20020513
  6. NEORAL [Suspect]
     Dosage: 200 MG/D
     Route: 048
     Dates: start: 20020514, end: 20020520
  7. NEORAL [Suspect]
     Dosage: 150 MG/D
     Route: 048
     Dates: start: 20020521, end: 20020527
  8. NEORAL [Suspect]
     Dosage: 125 MG/D
     Route: 048
     Dates: start: 20020528, end: 20020529
  9. PREDNISOLONE BUTYLACETATE [Concomitant]
     Dosage: 40 MG/D
     Route: 048
     Dates: start: 19980101
  10. PREDNISOLONE BUTYLACETATE [Concomitant]
     Dosage: 15 MG/D
     Route: 048
     Dates: start: 20020123, end: 20020408
  11. PREDNISOLONE BUTYLACETATE [Concomitant]
     Dosage: 40 MG/D
     Route: 048
     Dates: start: 20020409

REACTIONS (15)
  - ASEPTIC NECROSIS BONE [None]
  - CATARACT [None]
  - COOMBS INDIRECT TEST NEGATIVE [None]
  - COOMBS TEST POSITIVE [None]
  - HAEMATOCRIT DECREASED [None]
  - HAEMOGLOBIN DECREASED [None]
  - HAEMOLYTIC ANAEMIA [None]
  - HAPTOGLOBIN DECREASED [None]
  - INAPPROPRIATE ANTIDIURETIC HORMONE SECRETION [None]
  - PLATELET COUNT DECREASED [None]
  - PYREXIA [None]
  - RED BLOOD CELL COUNT DECREASED [None]
  - SYSTEMIC LUPUS ERYTHEMATOSUS [None]
  - THROMBOCYTOPENIA [None]
  - WHITE BLOOD CELL COUNT DECREASED [None]
